APPROVED DRUG PRODUCT: TOBRAMYCIN SULFATE
Active Ingredient: TOBRAMYCIN SULFATE
Strength: EQ 40MG BASE/ML
Dosage Form/Route: INJECTABLE;INJECTION
Application: A206965 | Product #001 | TE Code: AP
Applicant: BAXTER HEALTHCARE CORP
Approved: Jul 1, 2016 | RLD: No | RS: No | Type: RX